FAERS Safety Report 8920033 (Version 1)
Quarter: 2012Q4

REPORT INFORMATION
  Report Type: 
  Country: US (occurrence: US)
  Receive Date: 20121121
  Receipt Date: 20121121
  Transmission Date: 20130627
  Serious: No
  Sender: FDA-Public Use
  Company Number: US-009507513-1211USA007333

PATIENT
  Age: 11 Year
  Sex: Male

DRUGS (2)
  1. SINGULAIR [Suspect]
     Indication: ASTHMA
     Dosage: 5 mg, qd
     Route: 048
     Dates: start: 200811
  2. CONCERTA [Concomitant]

REACTIONS (2)
  - Asthma [Recovered/Resolved]
  - Drug ineffective [Unknown]
